FAERS Safety Report 8939902 (Version 3)
Quarter: 2013Q2

REPORT INFORMATION
  Report Type: Spontaneous
  Country: US (occurrence: US)
  Receive Date: 20121203
  Receipt Date: 20130501
  Transmission Date: 20140414
  Serious: Yes (Other)
  Sender: FDA-Public Use
  Company Number: US-009507513-1211USA010078

PATIENT
  Sex: Female
  Weight: 72.56 kg

DRUGS (10)
  1. PEG-INTRON [Suspect]
     Indication: HEPATITIS C
     Dosage: 96 MICROGRAM, QW
     Route: 058
     Dates: start: 20121116
  2. REBETOL [Suspect]
     Indication: HEPATITIS C
     Dosage: UNK
     Route: 048
     Dates: start: 20121116
  3. VICTRELIS [Suspect]
     Indication: HEPATITIS C
     Dosage: 200 MG, TID
     Route: 048
     Dates: start: 20121215
  4. KLONOPIN [Concomitant]
     Dosage: 2 MG, UNK
     Route: 048
  5. SEROQUEL [Concomitant]
     Dosage: 100 MG, UNK
     Route: 048
  6. DOXEPIN HYDROCHLORIDE [Concomitant]
     Dosage: 10 MG, UNK
     Route: 048
  7. METANX [Concomitant]
     Route: 048
  8. GABAPENTIN [Concomitant]
     Route: 048
  9. TRAZODONE HYDROCHLORIDE [Concomitant]
     Route: 048
  10. ARTHRITEN [Concomitant]

REACTIONS (30)
  - Dehydration [Unknown]
  - Injection site erythema [Unknown]
  - Fatigue [Unknown]
  - Rash [Unknown]
  - Pruritus [Unknown]
  - Oedema peripheral [Unknown]
  - Neuropathy peripheral [Unknown]
  - Diarrhoea [Recovered/Resolved]
  - Glossitis [Unknown]
  - Oral pain [Unknown]
  - Lip blister [Unknown]
  - Eye pain [Unknown]
  - Thrombocytopenia [Unknown]
  - Malaise [Unknown]
  - Urticaria [Unknown]
  - Decreased appetite [Unknown]
  - Pain [Unknown]
  - Insomnia [Unknown]
  - Blister [Unknown]
  - Glossitis [Unknown]
  - Glossodynia [Unknown]
  - Lip dry [Unknown]
  - Impaired healing [Unknown]
  - Scar [Unknown]
  - Contusion [Unknown]
  - White blood cell count decreased [Unknown]
  - Rash generalised [Unknown]
  - Skin disorder [Unknown]
  - Platelet count decreased [Unknown]
  - White blood cell count decreased [Unknown]
